FAERS Safety Report 15782453 (Version 5)
Quarter: 2019Q1

REPORT INFORMATION
  Report Type: Spontaneous
  Country: US (occurrence: US)
  Receive Date: 20190102
  Receipt Date: 20190125
  Transmission Date: 20190417
  Serious: Yes (Other)
  Sender: FDA-Public Use
  Company Number: US-CELGENEUS-USA-20181209685

PATIENT
  Age: 83 Year
  Sex: Male
  Weight: 80.99 kg

DRUGS (20)
  1. ACETYLSALICYLIC ACID [Concomitant]
     Active Substance: ASPIRIN
     Indication: CARDIAC DISORDER
     Dosage: 81 MILLIGRAM
     Route: 048
     Dates: start: 2011
  2. MULTIVITAMINS [Concomitant]
     Active Substance: VITAMINS
     Indication: NUTRITIONAL SUPPLEMENTATION
     Dosage: 1 DOSE
     Route: 048
     Dates: start: 20160101
  3. MAGNESIUM HYDROXIDE. [Concomitant]
     Active Substance: MAGNESIUM HYDROXIDE
     Indication: CONSTIPATION
     Dosage: 3 TABLESPOON
     Route: 048
     Dates: start: 20160303
  4. DARATUMUMAB [Concomitant]
     Active Substance: DARATUMUMAB
     Indication: PLASMA CELL MYELOMA
     Dosage: 1312 MILLIGRAM
     Route: 041
     Dates: start: 20160222, end: 20181113
  5. DARATUMUMAB [Concomitant]
     Active Substance: DARATUMUMAB
     Dosage: 1312 MILLIGRAM
     Route: 041
     Dates: start: 20181211
  6. BENAZEPRIL [Concomitant]
     Active Substance: BENAZEPRIL HYDROCHLORIDE
     Indication: HYPERTENSION
     Dosage: 20 MILLIGRAM
     Route: 048
     Dates: start: 1997
  7. COLECALCIFEROL [Concomitant]
     Active Substance: CHOLECALCIFEROL
     Indication: VITAMIN SUPPLEMENTATION
     Dosage: 1 DOSE
     Route: 048
     Dates: start: 20160101
  8. METOPROLOL. [Concomitant]
     Active Substance: METOPROLOL
     Indication: HYPERTENSION
     Dosage: 25 MILLIGRAM
     Route: 048
     Dates: start: 2012
  9. OMEPRAZOLE. [Concomitant]
     Active Substance: OMEPRAZOLE
     Indication: ABDOMINAL PAIN
     Dosage: 20 MILLIGRAM
     Route: 048
     Dates: start: 20160308
  10. PYRIDOXINE [Concomitant]
     Active Substance: PYRIDOXINE
     Indication: VITAMIN SUPPLEMENTATION
     Dosage: 100 MILLIGRAM
     Route: 048
     Dates: start: 20180327
  11. DOCUSATE SODIUM. [Concomitant]
     Active Substance: DOCUSATE SODIUM
     Indication: CONSTIPATION
     Dosage: 1 DOSE
     Route: 048
     Dates: start: 20160302
  12. FEXOFENADINE HYDROCHLORIDE. [Concomitant]
     Active Substance: FEXOFENADINE HYDROCHLORIDE
     Indication: SEASONAL ALLERGY
     Dosage: 90 MILLIGRAM
     Route: 048
     Dates: start: 20180714
  13. LEVETIRACETAM. [Concomitant]
     Active Substance: LEVETIRACETAM
     Indication: SEIZURE
     Dosage: 1000 MILLIGRAM
     Route: 048
     Dates: start: 2014
  14. METFORMIN [Concomitant]
     Active Substance: METFORMIN HYDROCHLORIDE
     Indication: TYPE 2 DIABETES MELLITUS
     Dosage: 2000 MILLIGRAM
     Route: 048
     Dates: start: 2011
  15. CETIRIZINE HYDROCHLORIDE. [Concomitant]
     Active Substance: CETIRIZINE HYDROCHLORIDE
     Indication: SEASONAL ALLERGY
     Dosage: 5 MILLIGRAM
     Route: 048
     Dates: start: 20161220
  16. DEXAMETHASONE IV [Suspect]
     Active Substance: DEXAMETHASONE
     Indication: PLASMA CELL MYELOMA
     Dosage: 20 MILLIGRAM
     Route: 041
     Dates: start: 20160222, end: 20181016
  17. PRAVASTATIN. [Concomitant]
     Active Substance: PRAVASTATIN
     Indication: CARDIAC DISORDER
     Dosage: 40 MILLIGRAM
     Route: 048
     Dates: start: 2011
  18. MACROGOL 3350 [Concomitant]
     Active Substance: POLYETHYLENE GLYCOL 3350
     Indication: CONSTIPATION
     Dosage: 1 DOSE
     Route: 048
     Dates: start: 20160229
  19. REVLIMID [Suspect]
     Active Substance: LENALIDOMIDE
     Indication: PLASMA CELL MYELOMA
     Dosage: 10 MILLIGRAM
     Route: 048
     Dates: start: 20160222, end: 20170130
  20. BUDESONIDE. [Concomitant]
     Active Substance: BUDESONIDE
     Indication: SEASONAL ALLERGY
     Dosage: 220 MICROGRAM
     Route: 045
     Dates: start: 20180714

REACTIONS (1)
  - Transitional cell carcinoma [Recovered/Resolved]

NARRATIVE: CASE EVENT DATE: 20181029
